FAERS Safety Report 9290040 (Version 1)
Quarter: 2013Q2

REPORT INFORMATION
  Report Type: Spontaneous
  Country: US (occurrence: None)
  Receive Date: 20130514
  Receipt Date: 20130514
  Transmission Date: 20140414
  Serious: Yes (Disabling)
  Sender: FDA-Public Use
  Company Number: None

PATIENT
  Age: 59 Year
  Sex: Male
  Weight: 127 kg

DRUGS (1)
  1. TISSUE PLASMINOGEN FACTOR [Suspect]
     Indication: PULMONARY EMBOLISM
     Dosage: 12.5 MG, CONTINUOUS X10HRS, IV DRIP
     Route: 041
     Dates: start: 20130509, end: 20130509

REACTIONS (6)
  - Pulmonary embolism [None]
  - Respiratory failure [None]
  - Hypertension [None]
  - Bradycardia [None]
  - Pupil fixed [None]
  - Cerebral haemorrhage [None]
